FAERS Safety Report 6910210-7 (Version None)
Quarter: 2010Q3

REPORT INFORMATION
  Report Type: 
  Country: None (occurrence: None)
  Receive Date: 20100806
  Receipt Date: 20100730
  Transmission Date: 20110219
  Serious: Yes (Death, Hospitalization, Other)
  Sender: FDA-Public Use
  Company Number: JP-BRACCO-003721

PATIENT
  Sex: Male

DRUGS (12)
  1. IOPAMIDOL [Suspect]
     Indication: DIAGNOSTIC PROCEDURE
     Dates: start: 20100208, end: 20100208
  2. ASPIRIN [Concomitant]
     Route: 048
     Dates: start: 20100208, end: 20100208
  3. ASPIRIN [Concomitant]
     Route: 048
     Dates: end: 20100207
  4. ASPIRIN [Concomitant]
     Route: 048
     Dates: start: 20100209
  5. PLAVIX [Concomitant]
     Route: 048
     Dates: start: 20100208, end: 20100208
  6. PLAVIX [Concomitant]
     Route: 048
     Dates: start: 20100209
  7. INVESTIGATIONAL DRUG [Suspect]
     Indication: THROMBOSIS PROPHYLAXIS
     Route: 048
     Dates: start: 20100212, end: 20100510
  8. ATORVASTATIN [Concomitant]
  9. MAGNESIUM OXIDE [Concomitant]
  10. INSULIN [Concomitant]
  11. PERINDOPRIL [Concomitant]
     Dates: start: 20100212
  12. H2 BLOCKER [Concomitant]
     Dates: start: 20100209

REACTIONS (9)
  - BLOOD PRESSURE INCREASED [None]
  - BRAIN STEM HAEMORRHAGE [None]
  - CEREBELLAR HAEMORRHAGE [None]
  - DEPRESSED LEVEL OF CONSCIOUSNESS [None]
  - HAEMATEMESIS [None]
  - HYPOVENTILATION [None]
  - RENAL FAILURE [None]
  - VERTIGO [None]
  - VIITH NERVE PARALYSIS [None]
